FAERS Safety Report 9195473 (Version 1)
Quarter: 2013Q1

REPORT INFORMATION
  Report Type: Spontaneous
  Country: US (occurrence: US)
  Receive Date: 20130328
  Receipt Date: 20130328
  Transmission Date: 20140127
  Serious: Yes (Hospitalization)
  Sender: FDA-Public Use
  Company Number: US-B.I. PHARMACEUTICALS,INC./RIDGEFIELD-2013-BI-08088BP

PATIENT
  Sex: Female

DRUGS (2)
  1. PRADAXA [Suspect]
     Indication: ATRIAL FIBRILLATION
     Dosage: 300 MG
     Route: 048
     Dates: start: 201209
  2. BETA BLOCKER [Concomitant]
     Route: 048

REACTIONS (6)
  - Heart rate decreased [Recovered/Resolved]
  - Atrial flutter [Recovered/Resolved]
  - Vasoconstriction [Unknown]
  - Swelling face [Not Recovered/Not Resolved]
  - Fatigue [Recovered/Resolved]
  - Dyspnoea exertional [Not Recovered/Not Resolved]
